FAERS Safety Report 25888708 (Version 2)
Quarter: 2025Q4

REPORT INFORMATION
  Report Type: Spontaneous
  Country: EU (occurrence: EU)
  Receive Date: 20251007
  Receipt Date: 20251014
  Transmission Date: 20260118
  Serious: Yes (Other)
  Sender: SANOFI AVENTIS
  Company Number: None

PATIENT

DRUGS (5)
  1. ANTI-THYMOCYTE GLOBULIN (RABBIT) NOS [Suspect]
     Active Substance: LAPINE T-LYMPHOCYTE IMMUNE GLOBULIN
     Indication: Infantile genetic agranulocytosis
     Dosage: UNK
  2. CYCLOPHOSPHAMIDE [Suspect]
     Active Substance: CYCLOPHOSPHAMIDE
     Indication: Infantile genetic agranulocytosis
     Dosage: UNK
  3. BUSULFAN [Suspect]
     Active Substance: BUSULFAN
     Indication: Infantile genetic agranulocytosis
     Dosage: UNK
  4. CYCLOSPORINE [Suspect]
     Active Substance: CYCLOSPORINE
     Indication: Prophylaxis against graft versus host disease
     Dosage: UNK
  5. GRANULOCYTE COLONY-STIMULATING FACTOR NOS [Concomitant]
     Active Substance: GRANULOCYTE COLONY-STIMULATING FACTOR NOS
     Indication: Infantile genetic agranulocytosis
     Dosage: UNK

REACTIONS (3)
  - Brain abscess [Unknown]
  - Seizure [Unknown]
  - Off label use [Unknown]
